FAERS Safety Report 8597504-7 (Version None)
Quarter: 2012Q3

REPORT INFORMATION
  Report Type: 
  Country: None (occurrence: None)
  Receive Date: 20120802
  Receipt Date: 20120717
  Transmission Date: 20120928
  Serious: Yes (Hospitalization)
  Sender: FDA-Public Use
  Company Number: UCM201207-000058

PATIENT
  Age: 30 Year
  Sex: Female

DRUGS (1)
  1. LAMOTRIGINE [Suspect]
     Indication: GRAND MAL CONVULSION

REACTIONS (8)
  - BLOOD CREATINE INCREASED [None]
  - MUCOSAL EROSION [None]
  - DRUG RASH WITH EOSINOPHILIA AND SYSTEMIC SYMPTOMS [None]
  - MOUTH ULCERATION [None]
  - BLOOD UREA INCREASED [None]
  - HUMAN HERPESVIRUS 6 INFECTION [None]
  - RESPIRATORY DISTRESS [None]
  - LIP ULCERATION [None]
